FAERS Safety Report 11924851 (Version 1)
Quarter: 2016Q1

REPORT INFORMATION
  Report Type: Spontaneous
  Country: FR (occurrence: FR)
  Receive Date: 20160118
  Receipt Date: 20160118
  Transmission Date: 20160526
  Serious: Yes (Hospitalization)
  Sender: FDA-Public Use
  Company Number: FR-SA-2016SA005986

PATIENT
  Age: 4 Day
  Sex: Male
  Weight: 1.38 kg

DRUGS (17)
  1. LASILIX [Suspect]
     Active Substance: FUROSEMIDE
     Route: 042
     Dates: start: 20150917, end: 20150918
  2. XYLOCAINE [Suspect]
     Active Substance: LIDOCAINE HYDROCHLORIDE
     Route: 064
  3. CAFFEINE. [Suspect]
     Active Substance: CAFFEINE
     Route: 042
     Dates: start: 20150917
  4. PARACETAMOL [Suspect]
     Active Substance: ACETAMINOPHEN
     Route: 042
     Dates: start: 20150916
  5. METRONIDAZOLE. [Concomitant]
     Active Substance: METRONIDAZOLE
     Dates: end: 20150829
  6. CUROSURF [Suspect]
     Active Substance: PORACTANT ALFA
     Route: 065
     Dates: start: 20150918, end: 20150918
  7. CEFOTAXIME [Suspect]
     Active Substance: CEFOTAXIME SODIUM
     Route: 064
     Dates: start: 20150916, end: 20150916
  8. ROPIVACAINE [Suspect]
     Active Substance: ROPIVACAINE
     Route: 064
  9. ZYPREXA [Suspect]
     Active Substance: OLANZAPINE
     Indication: MENTAL DISORDER
     Route: 064
     Dates: start: 20150617, end: 20150916
  10. CELESTENE [Suspect]
     Active Substance: BETAMETHASONE
     Route: 064
     Dates: start: 20150916, end: 20150916
  11. MORPHINE [Suspect]
     Active Substance: MORPHINE
     Route: 042
     Dates: start: 20150916, end: 20150918
  12. CELESTENE [Suspect]
     Active Substance: BETAMETHASONE
     Dosage: FORM- SUSPENSION FOR INJECTION
     Route: 064
     Dates: start: 20150824, end: 20150825
  13. SUFENTA [Suspect]
     Active Substance: SUFENTANIL CITRATE
     Route: 064
  14. AMIKACIN [Suspect]
     Active Substance: AMIKACIN
     Route: 042
     Dates: start: 20150919, end: 20150919
  15. CUROSURF [Suspect]
     Active Substance: PORACTANT ALFA
     Route: 039
     Dates: start: 20150916, end: 20150916
  16. CLAMOXYL [Suspect]
     Active Substance: AMOXICILLIN\CLAVULANIC ACID
     Route: 042
     Dates: start: 20150917, end: 20150919
  17. AMIKACIN [Suspect]
     Active Substance: AMIKACIN
     Route: 042
     Dates: start: 20150916, end: 20150916

REACTIONS (2)
  - Foetal exposure during pregnancy [Unknown]
  - Neonatal intestinal perforation [Recovered/Resolved with Sequelae]

NARRATIVE: CASE EVENT DATE: 20150919
